FAERS Safety Report 7426455-6 (Version None)
Quarter: 2011Q2

REPORT INFORMATION
  Report Type: 
  Country: None (occurrence: None)
  Receive Date: 20110420
  Receipt Date: 20110419
  Transmission Date: 20111010
  Serious: Yes (Hospitalization, Other)
  Sender: FDA-Public Use
  Company Number: US-PFIZER INC-2010163115

PATIENT
  Sex: Female
  Weight: 77 kg

DRUGS (11)
  1. CELEXA [Concomitant]
     Dosage: UNK
  2. CHANTIX [Suspect]
     Indication: SMOKING CESSATION THERAPY
     Dosage: 0.5 MG, 1X/DAY
     Dates: start: 20101110, end: 20101101
  3. MONTELUKAST [Concomitant]
     Dosage: UNK
  4. XOPENEX [Concomitant]
     Indication: ASTHMA
     Dosage: UNK
  5. CHANTIX [Suspect]
     Dosage: 0.5 MG, 2X/DAY
     Route: 048
     Dates: start: 20101101, end: 20101101
  6. CHANTIX [Suspect]
     Dosage: 1 MG, UNK
     Route: 048
  7. LORATADINE [Concomitant]
     Dosage: UNK
  8. DEPAKOTE [Concomitant]
     Indication: CONVULSION
     Dosage: UNK
  9. VALIUM [Concomitant]
     Dosage: UNK, 3X/DAY
  10. ADVAIR HFA [Concomitant]
     Dosage: UNK
  11. ALBUTEROL [Concomitant]
     Dosage: UNK

REACTIONS (8)
  - ABNORMAL DREAMS [None]
  - INSOMNIA [None]
  - MANIA [None]
  - VIOLENCE-RELATED SYMPTOM [None]
  - SCREAMING [None]
  - HALLUCINATION [None]
  - FEELING ABNORMAL [None]
  - DRUG HYPERSENSITIVITY [None]
